FAERS Safety Report 9663386 (Version 1)
Quarter: 2013Q4

REPORT INFORMATION
  Report Type: Report from Study
  Country: US (occurrence: US)
  Receive Date: 20131101
  Receipt Date: 20131101
  Transmission Date: 20140711
  Serious: Yes (Other)
  Sender: FDA-Public Use
  Company Number: US-BAXTER-2013BAX042542

PATIENT
  Age: 55 Year
  Sex: Male

DRUGS (3)
  1. PERCOCET [Concomitant]
     Indication: INTERVERTEBRAL DISC DEGENERATION
     Route: 065
  2. FLEXERIL [Concomitant]
     Indication: INTERVERTEBRAL DISC DEGENERATION
     Route: 065
  3. ARALAST NP [Suspect]
     Indication: PRODUCT USED FOR UNKNOWN INDICATION
     Route: 042

REACTIONS (1)
  - Nasopharyngitis [Not Recovered/Not Resolved]
